FAERS Safety Report 21628199 (Version 1)
Quarter: 2022Q4

REPORT INFORMATION
  Report Type: Spontaneous
  Country: US (occurrence: None)
  Receive Date: 20221118
  Receipt Date: 20221118
  Transmission Date: 20230113
  Serious: Yes (Other)
  Sender: FDA-Public Use
  Company Number: None

PATIENT
  Age: 52 Year
  Sex: Male
  Weight: 65 kg

DRUGS (9)
  1. VACCINIA IMMUNE GLOBULIN HUMAN [Suspect]
     Active Substance: VACCINIA IMMUNE GLOBULIN HUMAN
  2. Atovoquone 1500 mg po daily [Concomitant]
     Dates: start: 20221111
  3. Dolutegravir 50 mg po daily [Concomitant]
     Dates: start: 20221026
  4. Truvada 200-300 mg po daily [Concomitant]
     Dates: start: 20221025
  5. Ganciclovir IV 325 mg q12h [Concomitant]
     Dates: start: 20221107
  6. Hydromorphone 0.5 IV q4h PRN severe pain [Concomitant]
     Dates: start: 20221108
  7. Pantoprazole 40 mg IV once daily [Concomitant]
     Dates: start: 20221030
  8. Tecovirimat 200 mg IV q12h [Concomitant]
     Dates: start: 20221107
  9. Thiamine 100 mg po daily [Concomitant]
     Dates: start: 20221020

REACTIONS (3)
  - Agitation [None]
  - Chills [None]
  - Blood pressure decreased [None]

NARRATIVE: CASE EVENT DATE: 20221115
